FAERS Safety Report 14407442 (Version 2)
Quarter: 2018Q1

REPORT INFORMATION
  Report Type: Report from Study
  Country: US (occurrence: US)
  Receive Date: 20180118
  Receipt Date: 20180313
  Transmission Date: 20180509
  Serious: Yes (Other)
  Sender: FDA-Public Use
  Company Number: US-ROCHE-1721163

PATIENT
  Age: 40 Year
  Sex: Female
  Weight: 70.4 kg

DRUGS (27)
  1. LEVOFLOXACINE [Concomitant]
     Active Substance: LEVOFLOXACIN
     Indication: URINARY RETENTION
  2. BUPROPION. [Concomitant]
     Active Substance: BUPROPION
     Indication: DEPRESSION
     Route: 065
     Dates: start: 20130101
  3. ACETAMINOPHEN. [Concomitant]
     Active Substance: ACETAMINOPHEN
     Indication: PROPHYLAXIS
     Route: 065
     Dates: start: 20160315, end: 20160509
  4. SODIUM CHLORIDE. [Concomitant]
     Active Substance: SODIUM CHLORIDE
     Route: 065
     Dates: start: 20160202
  5. CLARITIN [Concomitant]
     Active Substance: LORATADINE
     Indication: SINUS CONGESTION
     Route: 065
     Dates: start: 20170131
  6. HEPARIN [Concomitant]
     Active Substance: HEPARIN SODIUM
     Route: 065
     Dates: start: 20160202
  7. ROBITUSSIN (GUAIFENESIN) [Concomitant]
     Active Substance: GUAIFENESIN
     Indication: PRODUCTIVE COUGH
     Route: 065
     Dates: start: 20160322
  8. MUCINEX [Concomitant]
     Active Substance: GUAIFENESIN
     Indication: SINUS CONGESTION
     Route: 065
     Dates: start: 20170131
  9. IBUPROFEN. [Concomitant]
     Active Substance: IBUPROFEN
     Indication: PAIN
     Route: 065
     Dates: start: 20000101
  10. METOCLOPRAMIDE. [Concomitant]
     Active Substance: METOCLOPRAMIDE
     Indication: NAUSEA
     Route: 065
     Dates: start: 20160412, end: 20161115
  11. NITROFURANTOIN. [Concomitant]
     Active Substance: NITROFURANTOIN
     Indication: URINARY TRACT INFECTION
     Route: 065
     Dates: start: 20160925, end: 20160929
  12. ACETAMINOPHEN. [Concomitant]
     Active Substance: ACETAMINOPHEN
     Indication: PREMEDICATION
     Route: 065
     Dates: start: 20160510
  13. NAB-PACLITAXEL [Suspect]
     Active Substance: PACLITAXEL
     Indication: BREAST CANCER METASTATIC
     Dosage: MOST RECENT DOSE (178 MG) ADMINISTERED ON 01/MAR/2016, PRIOR TO THE EVENT
     Route: 042
     Dates: start: 20160202
  14. LEVOFLOXACINE [Concomitant]
     Active Substance: LEVOFLOXACIN
     Indication: POLLAKIURIA
     Route: 065
     Dates: start: 20160705, end: 20160712
  15. POLYETHYLENE GLYCOL [Concomitant]
     Active Substance: POLYETHYLENE GLYCOLS
     Route: 065
     Dates: start: 20160620
  16. LEVOFLOXACINE [Concomitant]
     Active Substance: LEVOFLOXACIN
     Indication: DYSURIA
  17. COLACE [Concomitant]
     Active Substance: DOCUSATE SODIUM
     Route: 065
     Dates: start: 20030601
  18. ALTEPLASE. [Concomitant]
     Active Substance: ALTEPLASE
     Route: 065
     Dates: start: 20160329, end: 20160329
  19. GRANISETRON [Concomitant]
     Active Substance: GRANISETRON
     Indication: PROPHYLAXIS OF NAUSEA AND VOMITING
     Route: 065
     Dates: start: 20160510, end: 20161025
  20. OMEPRAZOLE. [Concomitant]
     Active Substance: OMEPRAZOLE
     Route: 065
     Dates: start: 20130101
  21. ATEZOLIZUMAB. [Suspect]
     Active Substance: ATEZOLIZUMAB
     Indication: BREAST CANCER METASTATIC
     Dosage: MOST RECENT DOSE ADMINISTERED ON 01/MAR/2016, PRIOR TO THE EVENT
     Route: 042
     Dates: start: 20160202
  22. BUSPIRONE [Concomitant]
     Active Substance: BUSPIRONE HYDROCHLORIDE
     Indication: DEPRESSION
     Route: 065
     Dates: start: 20150101
  23. MILK OF MAGNESIA [Concomitant]
     Active Substance: MAGNESIUM HYDROXIDE
     Indication: CONSTIPATION
     Route: 065
     Dates: start: 20030601
  24. ACETAMINOPHEN. [Concomitant]
     Active Substance: ACETAMINOPHEN
     Indication: HEADACHE
     Route: 065
     Dates: start: 20160203
  25. TRAMADOL. [Concomitant]
     Active Substance: TRAMADOL
     Indication: HEADACHE
     Route: 065
     Dates: start: 20160309
  26. ALLEGRA [Concomitant]
     Active Substance: FEXOFENADINE HYDROCHLORIDE
     Indication: RHINITIS ALLERGIC
     Route: 065
     Dates: start: 20160802
  27. DULCOLAX (BISACODYL) [Concomitant]
     Active Substance: BISACODYL
     Indication: CONSTIPATION
     Route: 065
     Dates: start: 20160227

REACTIONS (3)
  - Headache [Recovered/Resolved]
  - Scan abnormal [Unknown]
  - Influenza like illness [Recovered/Resolved]

NARRATIVE: CASE EVENT DATE: 20160217
